FAERS Safety Report 10731734 (Version 1)
Quarter: 2015Q1

REPORT INFORMATION
  Report Type: Report from Study
  Country: US (occurrence: US)
  Receive Date: 20150123
  Receipt Date: 20150123
  Transmission Date: 20150721
  Serious: Yes (Other)
  Sender: FDA-Public Use
  Company Number: US-AMGEN INC.-USASL2015005411

PATIENT
  Age: 13 Year
  Sex: Female

DRUGS (1)
  1. ENBREL [Suspect]
     Active Substance: ETANERCEPT
     Indication: JUVENILE IDIOPATHIC ARTHRITIS
     Dosage: 50 MG, QWK
     Route: 058
     Dates: start: 2013

REACTIONS (6)
  - Bronchitis [Recovered/Resolved]
  - Musculoskeletal injury [Unknown]
  - Back pain [Unknown]
  - Limb injury [Unknown]
  - Juvenile idiopathic arthritis [Unknown]
  - Back injury [Unknown]

NARRATIVE: CASE EVENT DATE: 201410
